FAERS Safety Report 8556218-X (Version None)
Quarter: 2012Q3

REPORT INFORMATION
  Report Type: 
  Country: None (occurrence: None)
  Receive Date: 20120801
  Receipt Date: 20120724
  Transmission Date: 20120928
  Serious: No
  Sender: FDA-Public Use
  Company Number: US-US-EMD SERONO, INC.-7051251

PATIENT
  Sex: Female

DRUGS (3)
  1. REBIF [Suspect]
     Indication: PRODUCT USED FOR UNKNOWN INDICATION
     Route: 058
     Dates: start: 20071031, end: 20110201
  2. IBUPROFEN (ADVIL) [Concomitant]
     Indication: PREMEDICATION
  3. REBIF [Suspect]
     Dates: end: 20110501

REACTIONS (3)
  - BRONCHITIS [None]
  - INJECTION SITE PAIN [None]
  - INFLUENZA [None]
